FAERS Safety Report 4950856-9 (Version None)
Quarter: 2006Q1

REPORT INFORMATION
  Report Type: 
  Country: None (occurrence: None)
  Receive Date: 20060315
  Receipt Date: 20060303
  Transmission Date: 20060701
  Serious: Yes (Other)
  Sender: FDA-Public Use
  Company Number: 216624

PATIENT
  Sex: Male
  Weight: 2.7 kg

DRUGS (3)
  1. MABTHERA (RITUXIMAB) CONC FOR SOLUTION FOR INFUSION [Suspect]
     Indication: IDIOPATHIC THROMBOCYTOPENIC PURPURA
     Dosage: 375 MG/M2 TRANSPLACENTAL
     Route: 064
     Dates: start: 20050601
  2. IMMUNE GLOBULIN INTRAVENOUS (HUMAN) [Concomitant]
  3. DEXAMETHASONE TAB [Concomitant]

REACTIONS (15)
  - BLOOD IMMUNOGLOBULIN A DECREASED [None]
  - BLOOD IMMUNOGLOBULIN M DECREASED [None]
  - CAESAREAN SECTION [None]
  - CEREBRAL HAEMATOMA [None]
  - DRUG EXPOSURE DURING PREGNANCY [None]
  - HYPOTHERMIA NEONATAL [None]
  - LYMPHOPENIA [None]
  - NEONATAL DISORDER [None]
  - NEONATAL RESPIRATORY DISTRESS SYNDROME [None]
  - PNEUMOTHORAX [None]
  - PREMATURE BABY [None]
  - PROTEIN TOTAL DECREASED [None]
  - SOMNOLENCE NEONATAL [None]
  - THROMBOCYTOPENIA NEONATAL [None]
  - ULTRASOUND SCAN ABNORMAL [None]
